FAERS Safety Report 4380497-6 (Version None)
Quarter: 2004Q2

REPORT INFORMATION
  Report Type: 
  Country: None (occurrence: None)
  Receive Date: 20040618
  Receipt Date: 20040608
  Transmission Date: 20050107
  Serious: Yes (Hospitalization, Other)
  Sender: FDA-Public Use
  Company Number: US-JNJFOC-20040203047

PATIENT
  Sex: Male
  Weight: 58.97 kg

DRUGS (48)
  1. REMICADE [Suspect]
     Route: 042
  2. REMICADE [Suspect]
     Route: 042
  3. REMICADE [Suspect]
     Route: 042
  4. REMICADE [Suspect]
     Route: 042
  5. REMICADE [Suspect]
     Route: 042
  6. REMICADE [Suspect]
     Route: 042
  7. REMICADE [Suspect]
     Route: 042
  8. REMICADE [Suspect]
     Indication: CROHN'S DISEASE
     Route: 042
  9. PARAGORIC [Concomitant]
     Route: 049
  10. PARAGORIC [Concomitant]
     Route: 049
  11. PARAGORIC [Concomitant]
     Route: 049
  12. PARAGORIC [Concomitant]
     Route: 049
  13. PARAGORIC [Concomitant]
     Route: 049
  14. PARAGORIC [Concomitant]
     Dosage: 2 TSP QID
     Route: 049
  15. NORCO [Concomitant]
     Route: 049
  16. NORCO [Concomitant]
     Indication: PAIN
     Dosage: WEANED OFF  1-2 TABLETS Q 6 HOURS
     Route: 049
  17. ULTRACET [Concomitant]
  18. COZAAR [Concomitant]
  19. LASIX [Concomitant]
  20. K-DUR 10 [Concomitant]
  21. FLOMAX [Concomitant]
  22. REMERON [Concomitant]
     Indication: ANXIETY
  23. MULTI-VITAMINS [Concomitant]
  24. MULTI-VITAMINS [Concomitant]
  25. MULTI-VITAMINS [Concomitant]
  26. MULTI-VITAMINS [Concomitant]
  27. MULTI-VITAMINS [Concomitant]
  28. MULTI-VITAMINS [Concomitant]
  29. MULTI-VITAMINS [Concomitant]
  30. MULTI-VITAMINS [Concomitant]
  31. LOMOTIL [Concomitant]
     Route: 049
  32. LOMOTIL [Concomitant]
     Route: 049
  33. HYDROCORTISONE [Concomitant]
     Dosage: 1 AT BEDTIME
  34. PROMETHAZINE [Concomitant]
     Indication: NAUSEA
     Dosage: EVERY 4 TO 6 HOURS AS NEEDED
  35. ACTONEL [Concomitant]
  36. VITAMIN B COMPLEX CAP [Concomitant]
  37. VITAMIN B COMPLEX CAP [Concomitant]
  38. VITAMIN B COMPLEX CAP [Concomitant]
  39. VITAMIN B COMPLEX CAP [Concomitant]
  40. VITAMIN B COMPLEX CAP [Concomitant]
  41. VITAMIN B6 [Concomitant]
  42. GLUTAMINE [Concomitant]
  43. TOPROL-XL [Concomitant]
  44. ENSURE [Concomitant]
  45. ENSURE [Concomitant]
  46. ENSURE [Concomitant]
     Dosage: 3- 8OZ CANS PER DAY
  47. MARINOL [Concomitant]
     Indication: ANOREXIA
  48. MARINOL [Concomitant]
     Indication: NAUSEA

REACTIONS (27)
  - ANOREXIA [None]
  - BLOOD CHLORIDE DECREASED [None]
  - BLOOD PRESSURE DECREASED [None]
  - BLOOD SODIUM DECREASED [None]
  - CHEST PAIN [None]
  - CHILLS [None]
  - DEHYDRATION [None]
  - DIARRHOEA [None]
  - DYSARTHRIA [None]
  - FEELING ABNORMAL [None]
  - GRAND MAL CONVULSION [None]
  - HOT FLUSH [None]
  - INFLUENZA LIKE ILLNESS [None]
  - INFUSION RELATED REACTION [None]
  - LOSS OF CONSCIOUSNESS [None]
  - NAUSEA [None]
  - PAIN [None]
  - PALLOR [None]
  - PHARYNGOESOPHAGEAL DIVERTICULUM [None]
  - PLATELET COUNT DECREASED [None]
  - PYREXIA [None]
  - RED BLOOD CELL COUNT DECREASED [None]
  - RESPIRATORY RATE INCREASED [None]
  - RESPIRATORY TRACT CONGESTION [None]
  - SYNCOPE [None]
  - TREMOR [None]
  - WHEEZING [None]
